FAERS Safety Report 5674028-8 (Version None)
Quarter: 2008Q1

REPORT INFORMATION
  Report Type: 
  Country: None (occurrence: None)
  Receive Date: 20080320
  Receipt Date: 20080208
  Transmission Date: 20080703
  Serious: No
  Sender: FDA-Public Use
  Company Number: US-BAYER-200814035NA

PATIENT
  Age: 48 Year
  Sex: Female
  Weight: 82 kg

DRUGS (2)
  1. MAGNEVIST [Suspect]
     Indication: NUCLEAR MAGNETIC RESONANCE IMAGING
     Route: 042
     Dates: start: 20080207, end: 20080207
  2. PREDNISONE [Concomitant]
     Indication: PREMEDICATION
     Route: 048
     Dates: start: 20080201, end: 20080201

REACTIONS (4)
  - FLUSHING [None]
  - HYPERHIDROSIS [None]
  - THROAT IRRITATION [None]
  - THROAT TIGHTNESS [None]
